FAERS Safety Report 11515363 (Version 3)
Quarter: 2020Q2

REPORT INFORMATION
  Report Type: Report from Study
  Country: AU (occurrence: AU)
  Receive Date: 20150916
  Receipt Date: 20200515
  Transmission Date: 20200713
  Serious: Yes (Other)
  Sender: FDA-Public Use
  Company Number: AU-JNJFOC-20150908703

PATIENT
  Sex: Female

DRUGS (2)
  1. REMICADE [Suspect]
     Active Substance: INFLIXIMAB
     Indication: ANKYLOSING SPONDYLITIS
     Route: 042
     Dates: start: 2010
  2. REMICADE [Suspect]
     Active Substance: INFLIXIMAB
     Dosage: WEIGHT DEPENDENT
     Route: 042
     Dates: start: 20150910

REACTIONS (3)
  - Drug ineffective [Unknown]
  - Urinary tract infection [Recovered/Resolved]
  - Candida infection [Recovered/Resolved]
